FAERS Safety Report 18460577 (Version 1)
Quarter: 2020Q4

REPORT INFORMATION
  Report Type: Spontaneous
  Country: US (occurrence: US)
  Receive Date: 20201104
  Receipt Date: 20201104
  Transmission Date: 20210114
  Serious: No
  Sender: FDA-Public Use
  Company Number: US-ELI_LILLY_AND_COMPANY-US202010012665

PATIENT
  Sex: Female

DRUGS (1)
  1. FORTEO [Suspect]
     Active Substance: TERIPARATIDE
     Indication: OSTEOPOROSIS
     Dosage: UNK, UNKNOWN
     Route: 065
     Dates: start: 20200917, end: 20201012

REACTIONS (15)
  - Drug ineffective [Unknown]
  - Heart rate increased [Unknown]
  - Asthma [Unknown]
  - COVID-19 [Unknown]
  - Palpitations [Unknown]
  - Injection site erythema [Unknown]
  - Injection site bruising [Unknown]
  - Malaise [Unknown]
  - Pruritus [Recovered/Resolved]
  - Blood calcium increased [Unknown]
  - Nausea [Unknown]
  - Gastrooesophageal reflux disease [Unknown]
  - Drug hypersensitivity [Unknown]
  - Headache [Unknown]
  - Dizziness [Unknown]

NARRATIVE: CASE EVENT DATE: 20201012
